FAERS Safety Report 7557549-2 (Version None)
Quarter: 2011Q2

REPORT INFORMATION
  Report Type: 
  Country: None (occurrence: None)
  Receive Date: 20110620
  Receipt Date: 20110614
  Transmission Date: 20111010
  Serious: No
  Sender: FDA-Public Use
  Company Number: US-PFIZER INC-2011130591

PATIENT
  Sex: Female
  Weight: 74.376 kg

DRUGS (3)
  1. LIPITOR [Concomitant]
     Indication: BLOOD CHOLESTEROL INCREASED
     Dosage: UNK
  2. CALCIUM CARBONATE/RISEDRONATE SODIUM [Concomitant]
     Indication: BONE DISORDER
     Dosage: UNK
  3. AROMASIN [Suspect]
     Indication: BREAST CANCER
     Dosage: 25 MG, DAILY
     Dates: start: 20070601

REACTIONS (6)
  - FATIGUE [None]
  - TREMOR [None]
  - DIZZINESS [None]
  - HEADACHE [None]
  - ASTHENIA [None]
  - WEIGHT INCREASED [None]
